FAERS Safety Report 5049348-0 (Version None)
Quarter: 2006Q3

REPORT INFORMATION
  Report Type: 
  Country: None (occurrence: None)
  Receive Date: 20060707
  Receipt Date: 20060626
  Transmission Date: 20061208
  Serious: Yes (Hospitalization, Other)
  Sender: FDA-Public Use
  Company Number: HQWYE640005APR06

PATIENT
  Age: 79 Year
  Sex: Female

DRUGS (12)
  1. MYLOTARG [Suspect]
     Indication: ACUTE MYELOID LEUKAEMIA
     Dosage: 15 MG, INTRAVENOUS
     Route: 042
     Dates: start: 20050601, end: 20050601
  2. MYLOTARG [Suspect]
     Indication: ACUTE MYELOID LEUKAEMIA
     Dosage: 15 MG, INTRAVENOUS
     Route: 042
     Dates: start: 20050616, end: 20050616
  3. AUGMENTIN '125' [Concomitant]
  4. ALLOPURINOL [Concomitant]
  5. DOCUSATE (DOCUSATE) [Concomitant]
  6. COMPAZINE [Concomitant]
  7. POTASSIUM CHLORIDE [Concomitant]
  8. NORVASC [Concomitant]
  9. PROPRANOLOL [Concomitant]
  10. MULTIVITAMINS, PLAIN (MULTIVITAMINS, PLAIN) [Concomitant]
  11. CALCIUM (CALCIUM) [Concomitant]
  12. FIBRE, DIETARY (FIBRE, DIETARY) [Concomitant]

REACTIONS (10)
  - ATELECTASIS [None]
  - BLOOD PRESSURE SYSTOLIC INCREASED [None]
  - DECREASED APPETITE [None]
  - EMPHYSEMA [None]
  - FEBRILE NEUTROPENIA [None]
  - HEART RATE INCREASED [None]
  - LOBAR PNEUMONIA [None]
  - LUNG NEOPLASM [None]
  - PSEUDOMONAL BACTERAEMIA [None]
  - RESPIRATORY RATE INCREASED [None]
